FAERS Safety Report 14318219 (Version 5)
Quarter: 2018Q2

REPORT INFORMATION
  Report Type: Report from Study
  Country: US (occurrence: US)
  Receive Date: 20171222
  Receipt Date: 20180620
  Transmission Date: 20180711
  Serious: Yes (Hospitalization, Disabling, Other)
  Sender: FDA-Public Use
  Company Number: PHEH2017US040927

PATIENT
  Age: 71 Year
  Sex: Male

DRUGS (4)
  1. ASPIRIN. [Concomitant]
     Active Substance: ASPIRIN
     Indication: PRODUCT USED FOR UNKNOWN INDICATION
     Dosage: 81 MG, UNK
     Route: 065
  2. GLEEVEC [Suspect]
     Active Substance: IMATINIB MESYLATE
     Indication: GASTROINTESTINAL STROMAL TUMOUR
     Dosage: 300 MG, QD
     Route: 048
     Dates: start: 20130428
  3. ATORVASTATIN [Concomitant]
     Active Substance: ATORVASTATIN
     Indication: PRODUCT USED FOR UNKNOWN INDICATION
     Route: 065
  4. INSULIN [Concomitant]
     Active Substance: INSULIN NOS
     Indication: PRODUCT USED FOR UNKNOWN INDICATION
     Route: 065

REACTIONS (19)
  - Depression [Unknown]
  - Neoplasm malignant [Unknown]
  - Cerebrovascular accident [Recovered/Resolved with Sequelae]
  - Brain injury [Unknown]
  - Diabetes mellitus [Unknown]
  - General physical health deterioration [Unknown]
  - Blindness [Unknown]
  - Tremor [Unknown]
  - Sensory loss [Unknown]
  - Second primary malignancy [Unknown]
  - Photopsia [Unknown]
  - Memory impairment [Unknown]
  - Motor dysfunction [Unknown]
  - Hypotension [Unknown]
  - Hypertension [Unknown]
  - Visual impairment [Unknown]
  - Cerebrovascular accident [Unknown]
  - Hyperglycaemia [Unknown]
  - Vision blurred [Unknown]

NARRATIVE: CASE EVENT DATE: 20170101
